FAERS Safety Report 12281502 (Version 1)
Quarter: 2016Q2

REPORT INFORMATION
  Report Type: Spontaneous
  Country: HU (occurrence: HU)
  Receive Date: 20160419
  Receipt Date: 20160419
  Transmission Date: 20160815
  Serious: Yes (Hospitalization)
  Sender: FDA-Public Use
  Company Number: HU-ELI_LILLY_AND_COMPANY-HU201604003025

PATIENT
  Age: 52 Year

DRUGS (15)
  1. HUMALOG [Suspect]
     Active Substance: INSULIN LISPRO
     Dosage: 10 DF, EACH MORNING
     Route: 065
     Dates: start: 201509
  2. HUMULIN R [Suspect]
     Active Substance: INSULIN HUMAN
     Indication: PRODUCT USED FOR UNKNOWN INDICATION
     Dosage: 12 DF, EACH MORNING
     Route: 065
  3. HUMULIN R [Suspect]
     Active Substance: INSULIN HUMAN
     Dosage: 20 DF, EACH EVENING
     Route: 065
  4. HUMULIN N [Suspect]
     Active Substance: INSULIN HUMAN
     Indication: PRODUCT USED FOR UNKNOWN INDICATION
     Dosage: 12 DF, EACH EVENING
     Route: 065
  5. HUMALOG [Suspect]
     Active Substance: INSULIN LISPRO
     Dosage: 9 DF, EACH EVENING
     Route: 065
     Dates: start: 201509
  6. HUMULIN R [Suspect]
     Active Substance: INSULIN HUMAN
     Dosage: 8 DF, QD
     Route: 065
     Dates: start: 2009
  7. HUMULIN R [Suspect]
     Active Substance: INSULIN HUMAN
     Dosage: 10 DF, EACH EVENING
     Route: 065
     Dates: start: 2009
  8. HUMULIN R [Suspect]
     Active Substance: INSULIN HUMAN
     Dosage: 12 DF, EACH MORNING
     Route: 065
  9. HUMULIN R [Suspect]
     Active Substance: INSULIN HUMAN
     Dosage: 10 DF, BID
     Route: 065
  10. HUMALOG [Suspect]
     Active Substance: INSULIN LISPRO
     Dosage: 9 DF, QD
     Route: 065
     Dates: start: 201509
  11. HUMALOG [Suspect]
     Active Substance: INSULIN LISPRO
     Dosage: 4 DF, TID
     Route: 065
     Dates: start: 201602
  12. ABASAGLAR [Suspect]
     Active Substance: INSULIN GLARGINE
     Dosage: 42 DF, UNKNOWN
     Dates: start: 201604
  13. DAPAGLIFLOZIN [Suspect]
     Active Substance: DAPAGLIFLOZIN
     Indication: PRODUCT USED FOR UNKNOWN INDICATION
     Dosage: UNK, UNKNOWN
     Route: 065
  14. HUMALOG [Suspect]
     Active Substance: INSULIN LISPRO
     Indication: PRODUCT USED FOR UNKNOWN INDICATION
     Dosage: 8 DF, TID
     Route: 065
     Dates: start: 200912
  15. ABASAGLAR [Suspect]
     Active Substance: INSULIN GLARGINE
     Indication: PRODUCT USED FOR UNKNOWN INDICATION
     Dosage: 44 DF, EACH EVENING
     Route: 065
     Dates: start: 201509

REACTIONS (7)
  - Weight increased [Recovering/Resolving]
  - Blood glucose increased [Recovering/Resolving]
  - Glycosylated haemoglobin increased [Recovering/Resolving]
  - Body mass index increased [Unknown]
  - Glucose urine present [Recovered/Resolved]
  - Genital infection [Unknown]
  - Weight decreased [Unknown]

NARRATIVE: CASE EVENT DATE: 200912
